FAERS Safety Report 5422205-3 (Version None)
Quarter: 2007Q3

REPORT INFORMATION
  Report Type: 
  Country: None (occurrence: None)
  Receive Date: 20070817
  Receipt Date: 20070803
  Transmission Date: 20080115
  Serious: Yes (Life-Threatening)
  Sender: FDA-Public Use
  Company Number: 2007P1000256

PATIENT
  Age: 63 Year
  Sex: Male

DRUGS (1)
  1. BUSULFAN (BUSULFAN) [Suspect]
     Indication: STEM CELL TRANSPLANT
     Dosage: ; IV
     Route: 042
     Dates: start: 20070322, end: 20070323

REACTIONS (15)
  - ACUTE GRAFT VERSUS HOST DISEASE [None]
  - BLOOD LACTATE DEHYDROGENASE INCREASED [None]
  - BONE MARROW TRANSPLANT [None]
  - DIARRHOEA [None]
  - FEBRILE NEUTROPENIA [None]
  - GASTROINTESTINAL DISORDER [None]
  - HAEMODIALYSIS [None]
  - HAEMORRHAGIC CEREBRAL INFARCTION [None]
  - LIVER DISORDER [None]
  - MELAENA [None]
  - PYREXIA [None]
  - SKIN DISORDER [None]
  - STAPHYLOCOCCAL SEPSIS [None]
  - THROMBOTIC MICROANGIOPATHY [None]
  - THROMBOTIC THROMBOCYTOPENIC PURPURA [None]
